FAERS Safety Report 5827501-3 (Version None)
Quarter: 2008Q3

REPORT INFORMATION
  Report Type: 
  Country: None (occurrence: None)
  Receive Date: 20080730
  Receipt Date: 20080715
  Transmission Date: 20090109
  Serious: Yes (Other)
  Sender: FDA-Public Use
  Company Number: JP-ASTRAZENECA-2008AP05380

PATIENT
  Age: 19896 Day
  Sex: Female

DRUGS (8)
  1. SEROQUEL [Suspect]
     Indication: SCHIZOPHRENIA
     Route: 048
     Dates: start: 20070915, end: 20070928
  2. SEROQUEL [Suspect]
     Route: 048
     Dates: start: 20070929, end: 20080608
  3. SEROQUEL [Suspect]
     Route: 048
     Dates: start: 20080609, end: 20080612
  4. SEROQUEL [Suspect]
     Route: 048
     Dates: start: 20080613, end: 20080618
  5. ZYPREXA [Concomitant]
     Indication: HALLUCINATION
     Route: 048
     Dates: start: 20070907
  6. ZYPREXA [Concomitant]
     Indication: DELUSION
     Route: 048
     Dates: start: 20070907
  7. DORAL [Concomitant]
     Indication: INSOMNIA
     Route: 048
     Dates: start: 20070907
  8. PURSENNID [Concomitant]
     Indication: CONSTIPATION
     Route: 048
     Dates: start: 20071110

REACTIONS (1)
  - GRANULOCYTOPENIA [None]
